FAERS Safety Report 11444154 (Version 3)
Quarter: 2016Q2

REPORT INFORMATION
  Report Type: Report from Study
  Country: US (occurrence: US)
  Receive Date: 20150901
  Receipt Date: 20160405
  Transmission Date: 20160815
  Serious: No
  Sender: FDA-Public Use
  Company Number: US-AMGEN-USASP2015087870

PATIENT
  Age: 52 Year
  Sex: Male

DRUGS (1)
  1. ENBREL [Suspect]
     Active Substance: ETANERCEPT
     Indication: RHEUMATOID ARTHRITIS
     Dosage: 50 MG, QWK
     Route: 065
     Dates: start: 20150824

REACTIONS (10)
  - Rhinorrhoea [Unknown]
  - Dyspepsia [Unknown]
  - Sinus congestion [Recovered/Resolved]
  - Pain in jaw [Unknown]
  - Fatigue [Unknown]
  - Arthralgia [Unknown]
  - Headache [Recovered/Resolved]
  - Eye pain [Unknown]
  - Toothache [Unknown]
  - Sinusitis [Unknown]

NARRATIVE: CASE EVENT DATE: 2015
